FAERS Safety Report 5111171-6 (Version None)
Quarter: 2006Q3

REPORT INFORMATION
  Report Type: 
  Country: None (occurrence: None)
  Receive Date: 20060922
  Receipt Date: 20060912
  Transmission Date: 20061208
  Serious: Yes (Disabling)
  Sender: FDA-Public Use
  Company Number: DE-JNJFOC-20060902430

PATIENT
  Age: 66 Year
  Sex: Female

DRUGS (1)
  1. TAVANIC [Suspect]
     Indication: PNEUMONIA
     Route: 048

REACTIONS (2)
  - ANOSMIA [None]
  - DYSGEUSIA [None]
